FAERS Safety Report 23618620 (Version 1)
Quarter: 2024Q1

REPORT INFORMATION
  Report Type: Spontaneous
  Country: US (occurrence: US)
  Receive Date: 20240311
  Receipt Date: 20240311
  Transmission Date: 20240410
  Serious: No
  Sender: FDA-Public Use
  Company Number: US-TRAVERE-2024TVT00228

PATIENT
  Age: 63 Year
  Sex: Female

DRUGS (2)
  1. FILSPARI [Suspect]
     Active Substance: SPARSENTAN
     Indication: Proteinuria
     Route: 048
     Dates: start: 202305
  2. FILSPARI [Suspect]
     Active Substance: SPARSENTAN
     Indication: Nephritic syndrome

REACTIONS (3)
  - Pain [Unknown]
  - Gait inability [Unknown]
  - Product use in unapproved indication [Unknown]
